FAERS Safety Report 10133481 (Version 1)
Quarter: 2014Q2

REPORT INFORMATION
  Report Type: Report from Study
  Country: AU (occurrence: AU)
  Receive Date: 20140428
  Receipt Date: 20140428
  Transmission Date: 20141212
  Serious: Yes (Hospitalization, Other)
  Sender: FDA-Public Use
  Company Number: AU-BRISTOL-MYERS SQUIBB COMPANY-20651386

PATIENT
  Age: 29 Year
  Sex: Female

DRUGS (13)
  1. ABATACEPT SUBQ INJECTION 125MG/ML [Suspect]
     Indication: RHEUMATOID ARTHRITIS
     Route: 058
     Dates: start: 20110620
  2. SELDANE [Concomitant]
  3. PLAQUENIL [Concomitant]
  4. ENDEP [Concomitant]
  5. HUMALOG [Concomitant]
     Dosage: TDS AS PER SLIDINF SCALE
  6. LANTUS [Concomitant]
  7. FISH OIL [Concomitant]
     Dosage: 1DF=6 DAILY UNITS NOS
  8. BOSWELLIA [Concomitant]
  9. GLUCOSAMINE [Concomitant]
     Dosage: TABS
  10. CALCIUM [Concomitant]
     Dosage: TABS
  11. METHOTREXATE [Concomitant]
  12. PREDNISOLONE [Concomitant]
  13. REVITALOSE [Concomitant]
     Dosage: 10CAPSULES

REACTIONS (2)
  - Femur fracture [Recovered/Resolved with Sequelae]
  - Tendon disorder [Unknown]
